FAERS Safety Report 5943984-2 (Version None)
Quarter: 2008Q4

REPORT INFORMATION
  Report Type: 
  Country: None (occurrence: None)
  Receive Date: 20081106
  Receipt Date: 20081026
  Transmission Date: 20090506
  Serious: Yes (Hospitalization, Other)
  Sender: FDA-Public Use
  Company Number: AT-ELI_LILLY_AND_COMPANY-AT200810006086

PATIENT
  Age: 41 Year
  Sex: Male

DRUGS (6)
  1. ZYPREXA [Suspect]
     Dosage: 20 MG, DAILY (1/D)
     Dates: start: 20080707, end: 20080707
  2. ZYPREXA [Suspect]
     Dosage: 15 MG, DAILY (1/D)
     Dates: start: 20080708, end: 20080710
  3. ZYPREXA [Suspect]
     Dosage: 20 MG, DAILY (1/D)
     Dates: start: 20080711
  4. TEMESTA [Concomitant]
     Dosage: 5 MG, DAILY (1/D)
     Dates: start: 20080707, end: 20080708
  5. TEMESTA [Concomitant]
     Dosage: 2.5 MG, UNK
     Dates: start: 20080709, end: 20080710
  6. TEMESTA [Concomitant]
     Dosage: 0.5 MG, DAILY (1/D)
     Dates: start: 20080710, end: 20080717

REACTIONS (4)
  - COMPULSIONS [None]
  - PSYCHOTIC DISORDER [None]
  - SEDATION [None]
  - SKULL FRACTURE [None]
